FAERS Safety Report 10497292 (Version 1)
Quarter: 2014Q4

REPORT INFORMATION
  Report Type: Spontaneous
  Country: UA (occurrence: UA)
  Receive Date: 20141006
  Receipt Date: 20141006
  Transmission Date: 20150528
  Serious: Yes (Hospitalization, Other)
  Sender: FDA-Public Use
  Company Number: UA-DRREDDYS-GPV/UKR/14/0043196

PATIENT
  Age: 16 Year
  Sex: Female

DRUGS (2)
  1. EXIFINE 250MG TABLETS [Suspect]
     Active Substance: TERBINAFINE HYDROCHLORIDE
     Indication: SEBORRHOEIC DERMATITIS
     Route: 048
     Dates: start: 20131003
  2. WOLVIT [Concomitant]
     Indication: PRODUCT USED FOR UNKNOWN INDICATION
     Route: 048
     Dates: start: 20130918, end: 20131020

REACTIONS (2)
  - Macule [Recovering/Resolving]
  - Periorbital oedema [Recovering/Resolving]

NARRATIVE: CASE EVENT DATE: 20131010
